FAERS Safety Report 4576439-0 (Version None)
Quarter: 2005Q1

REPORT INFORMATION
  Report Type: 
  Country: None (occurrence: None)
  Receive Date: 20050209
  Receipt Date: 20050105
  Transmission Date: 20050727
  Serious: Yes (Hospitalization)
  Sender: FDA-Public Use
  Company Number: US-MERCK-0501USA00687

PATIENT
  Age: 80 Year
  Sex: Male
  Weight: 67 kg

DRUGS (3)
  1. PRINIVIL [Suspect]
     Route: 048
  2. COZAAR [Suspect]
     Indication: RENAL FAILURE
     Route: 048
     Dates: start: 20041207
  3. COZAAR [Suspect]
     Indication: HYPERTENSION
     Route: 048
     Dates: start: 20041207

REACTIONS (4)
  - ATRIAL FIBRILLATION [None]
  - CHOLECYSTITIS INFECTIVE [None]
  - PNEUMONIA ASPIRATION [None]
  - RENAL FAILURE [None]
